FAERS Safety Report 16945792 (Version 1)
Quarter: 2019Q4

REPORT INFORMATION
  Report Type: Other
  Country: CN (occurrence: CN)
  Receive Date: 20191022
  Receipt Date: 20191022
  Transmission Date: 20200122
  Serious: Yes (Hospitalization)
  Sender: FDA-Public Use
  Company Number: CN-VALIDUS PHARMACEUTICALS LLC-CN-2019VAL000612

PATIENT

DRUGS (6)
  1. DEPAKINE                           /00228501/ [Suspect]
     Active Substance: VALPROIC ACID
     Indication: EPILEPSY
     Dosage: 0.8 G, BID
     Route: 042
     Dates: start: 20190829, end: 20190908
  2. CHLORPROMAZINE HYDROCHLORIDE. [Suspect]
     Active Substance: CHLORPROMAZINE HYDROCHLORIDE
     Indication: SEDATION
     Dosage: 50 MG, BID
     Route: 042
     Dates: start: 20190830, end: 20190902
  3. SODIUM CHLORIDE. [Concomitant]
     Active Substance: SODIUM CHLORIDE
     Indication: PRODUCT USED FOR UNKNOWN INDICATION
     Dosage: UNK
     Dates: start: 20190830, end: 20190902
  4. GLUCOSE INJECTION [Concomitant]
     Active Substance: DEXTROSE
     Indication: PRODUCT USED FOR UNKNOWN INDICATION
     Dosage: UNK
     Dates: start: 20190829, end: 20190908
  5. PROMETHAZINE HYDROCHLORIDE. [Suspect]
     Active Substance: PROMETHAZINE HYDROCHLORIDE
     Indication: SEDATION
     Dosage: 50 MG, BID
     Route: 042
     Dates: start: 20190830, end: 20190902
  6. PETHIDINE HYDROCHLORIDE [Suspect]
     Active Substance: MEPERIDINE HYDROCHLORIDE
     Indication: SEDATION
     Dosage: 0.10 G, BID
     Route: 042
     Dates: start: 20190830, end: 20190902

REACTIONS (1)
  - Hepatic enzyme increased [Recovered/Resolved]

NARRATIVE: CASE EVENT DATE: 20190902
